FAERS Safety Report 15806775 (Version 1)
Quarter: 2019Q1

REPORT INFORMATION
  Report Type: Spontaneous
  Country: US (occurrence: US)
  Receive Date: 20190104
  Receipt Date: 20190104
  Transmission Date: 20190417
  Serious: No
  Sender: FDA-Public Use
  Company Number: None

PATIENT

DRUGS (1)
  1. CYMBALTA [Suspect]
     Active Substance: DULOXETINE HYDROCHLORIDE

REACTIONS (11)
  - Disorientation [None]
  - Wound [None]
  - Product dose omission [None]
  - Abnormal behaviour [None]
  - Intentional self-injury [None]
  - Drug withdrawal syndrome [None]
  - Aggression [None]
  - Agitation [None]
  - Traumatic lung injury [None]
  - Stab wound [None]
  - Feeling abnormal [None]

NARRATIVE: CASE EVENT DATE: 2018
